FAERS Safety Report 12425914 (Version 6)
Quarter: 2016Q3

REPORT INFORMATION
  Report Type: Report from Study
  Country: BR (occurrence: BR)
  Receive Date: 20160601
  Receipt Date: 20160822
  Transmission Date: 20161109
  Serious: Yes (Other)
  Sender: FDA-Public Use
  Company Number: BR-JNJFOC-20160528884

PATIENT
  Age: 53 Year
  Sex: Female
  Weight: 69.7 kg

DRUGS (2)
  1. METHOTREXATE. [Concomitant]
     Active Substance: METHOTREXATE
     Route: 065
  2. SIMPONI [Suspect]
     Active Substance: GOLIMUMAB
     Indication: RHEUMATOID ARTHRITIS
     Route: 058
     Dates: start: 20160428

REACTIONS (9)
  - Nasopharyngitis [Unknown]
  - Joint swelling [Unknown]
  - Pain in jaw [Unknown]
  - Influenza [Unknown]
  - Pain [Unknown]
  - Dermatitis allergic [Unknown]
  - Chills [Unknown]
  - Arthralgia [Unknown]
  - Dry skin [Unknown]

NARRATIVE: CASE EVENT DATE: 2016
